FAERS Safety Report 16871843 (Version 1)
Quarter: 2019Q4

REPORT INFORMATION
  Report Type: Other
  Country: US (occurrence: US)
  Receive Date: 20191001
  Receipt Date: 20191001
  Transmission Date: 20200122
  Serious: Yes (Other)
  Sender: FDA-Public Use
  Company Number: US-ORCHID HEALTHCARE-2075119

PATIENT
  Age: 30 Year
  Sex: Male

DRUGS (1)
  1. MODAFINIL. [Suspect]
     Active Substance: MODAFINIL
     Indication: SOMNOLENCE
     Route: 065

REACTIONS (1)
  - Obsessive-compulsive disorder [Recovered/Resolved]
